FAERS Safety Report 13034641 (Version 2)
Quarter: 2018Q1

REPORT INFORMATION
  Report Type: Spontaneous
  Country: US (occurrence: US)
  Receive Date: 20161216
  Receipt Date: 20180124
  Transmission Date: 20180508
  Serious: Yes (Life-Threatening, Other)
  Sender: FDA-Public Use
  Company Number: US-EDISON THERAPEUTICS, LLC-2016-05525

PATIENT
  Sex: Male

DRUGS (2)
  1. VITAMIN K [Concomitant]
     Active Substance: PHYTONADIONE
     Indication: HAEMORRHAGE PROPHYLAXIS
     Dosage: 1 MG,QD,
     Route: 030
  2. METHYLERGONOVINE INJECTION [Suspect]
     Active Substance: METHYLERGONOVINE
     Indication: PRODUCT USED FOR UNKNOWN INDICATION
     Dosage: .1 MG,QD,
     Route: 030

REACTIONS (3)
  - Accidental poisoning [Recovered/Resolved]
  - Oxygen saturation decreased [Recovered/Resolved]
  - Drug administration error [Unknown]
